FAERS Safety Report 6138082-1 (Version None)
Quarter: 2009Q1

REPORT INFORMATION
  Report Type: 
  Country: None (occurrence: None)
  Receive Date: 20090327
  Receipt Date: 20090327
  Transmission Date: 20090719
  Serious: Yes (Other)
  Sender: FDA-Public Use
  Company Number: None

PATIENT
  Age: 22 Year
  Sex: Female
  Weight: 64.0479 kg

DRUGS (1)
  1. LACTATED RINGER'S [Suspect]
     Indication: FLUID REPLACEMENT
     Dosage: 500CC BOLUS THEN @ 125CC/HR BOLUS IV BOLUS
     Route: 040
     Dates: start: 20090326, end: 20090326

REACTIONS (6)
  - ANXIETY [None]
  - BACK PAIN [None]
  - CHEST PAIN [None]
  - COUGH [None]
  - DYSPNOEA [None]
  - NO REACTION ON PREVIOUS EXPOSURE TO DRUG [None]
